FAERS Safety Report 4915220-7 (Version None)
Quarter: 2006Q1

REPORT INFORMATION
  Report Type: 
  Country: None (occurrence: None)
  Receive Date: 20060216
  Receipt Date: 20060216
  Transmission Date: 20060701
  Serious: Yes (Hospitalization)
  Sender: FDA-Public Use
  Company Number: None

PATIENT
  Sex: Female
  Weight: 90.7194 kg

DRUGS (2)
  1. DILANTIN [Suspect]
     Indication: EPILEPSY
     Dosage: PO QID
     Route: 048
  2. PHENOBARBITAL TAB [Concomitant]

REACTIONS (4)
  - ABDOMINAL PAIN [None]
  - ANTICONVULSANT DRUG LEVEL INCREASED [None]
  - HEADACHE [None]
  - OEDEMA PERIPHERAL [None]
